FAERS Safety Report 10734149 (Version 3)
Quarter: 2015Q1

REPORT INFORMATION
  Report Type: Report from Study
  Country: CA (occurrence: CA)
  Receive Date: 20150123
  Receipt Date: 20150226
  Transmission Date: 20150721
  Serious: Yes (Death, Other)
  Sender: FDA-Public Use
  Company Number: CA-ABBVIE-15P-028-1337284-00

PATIENT
  Age: 83 Year
  Sex: Female
  Weight: 62.65 kg

DRUGS (1)
  1. HUMIRA [Suspect]
     Active Substance: ADALIMUMAB
     Indication: RHEUMATOID ARTHRITIS
     Route: 058
     Dates: start: 20040521, end: 2014

REACTIONS (6)
  - Neutrophil count increased [Unknown]
  - Interstitial lung disease [Fatal]
  - Total lung capacity decreased [Not Recovered/Not Resolved]
  - Asthenia [Unknown]
  - Lymphocyte count decreased [Unknown]
  - Atrial fibrillation [Unknown]

NARRATIVE: CASE EVENT DATE: 2005
